FAERS Safety Report 5780158-2 (Version None)
Quarter: 2008Q2

REPORT INFORMATION
  Report Type: 
  Country: None (occurrence: None)
  Receive Date: 20080620
  Receipt Date: 20070614
  Transmission Date: 20081010
  Serious: No
  Sender: FDA-Public Use
  Company Number: US-BRISTOL-MYERS SQUIBB COMPANY-13814264

PATIENT
  Age: 81 Year
  Sex: Female
  Weight: 58 kg

DRUGS (5)
  1. LODOSYN TABS [Suspect]
     Dosage: DOSE IS 25/100 ONE TABLET.
     Route: 048
     Dates: start: 20070614
  2. SINEMET [Concomitant]
     Dosage: 12-JUN-2007 DOSE CHANGED FROM 25/100 1/2 TABLET TO 25/100 WHOLE TABLET
     Dates: start: 20070612
  3. AMBIEN [Concomitant]
  4. XANAX [Concomitant]
  5. LEVOTHYROXINE SODIUM [Concomitant]

REACTIONS (2)
  - BURNING SENSATION [None]
  - DEPERSONALISATION [None]
